FAERS Safety Report 7381154-4 (Version None)
Quarter: 2011Q1

REPORT INFORMATION
  Report Type: 
  Country: None (occurrence: None)
  Receive Date: 20110329
  Receipt Date: 20100713
  Transmission Date: 20110831
  Serious: No
  Sender: FDA-Public Use
  Company Number: US-MYLANLABS-2010S1011303

PATIENT
  Age: 56 Year
  Sex: Male

DRUGS (4)
  1. VERAPAMIL EXTENDED-RELEASE [Suspect]
     Indication: BLOOD PRESSURE INCREASED
     Route: 048
     Dates: start: 20100201, end: 20100401
  2. ZANTAC [Concomitant]
  3. VERAPAMIL [Suspect]
     Indication: BLOOD PRESSURE INCREASED
     Route: 048
     Dates: end: 20100401
  4. VERAPAMIL HYDROCHLORIDE [Suspect]
     Indication: BLOOD PRESSURE INCREASED
     Route: 048
     Dates: start: 20100201

REACTIONS (15)
  - DIZZINESS [None]
  - DEHYDRATION [None]
  - VISION BLURRED [None]
  - DRUG INTERACTION [None]
  - CHEST PAIN [None]
  - VOMITING [None]
  - OEDEMA PERIPHERAL [None]
  - HYPOAESTHESIA [None]
  - COUGH [None]
  - DRY MOUTH [None]
  - DRY EYE [None]
  - HYPOGLYCAEMIA [None]
  - ABDOMINAL DISTENSION [None]
  - HEADACHE [None]
  - BLOOD PRESSURE INCREASED [None]
